FAERS Safety Report 20635353 (Version 1)
Quarter: 2022Q1

REPORT INFORMATION
  Report Type: Spontaneous
  Country: US (occurrence: None)
  Receive Date: 20220325
  Receipt Date: 20220325
  Transmission Date: 20220424
  Serious: Yes (Hospitalization, Other)
  Sender: FDA-Public Use
  Company Number: US-Hikma Pharmaceuticals USA Inc.-US-H14001-22-00794

PATIENT
  Age: 66 Year
  Sex: Female
  Weight: 58 kg

DRUGS (15)
  1. METHADONE [Suspect]
     Active Substance: METHADONE HYDROCHLORIDE
     Indication: Substance use disorder
     Route: 048
     Dates: start: 20161026
  2. MOTOLIMOD [Suspect]
     Active Substance: MOTOLIMOD
     Indication: Squamous cell carcinoma of head and neck
     Route: 058
     Dates: start: 20210811, end: 20210811
  3. NIVOLUMAB [Suspect]
     Active Substance: NIVOLUMAB
     Indication: Squamous cell carcinoma of head and neck
     Route: 042
     Dates: start: 20210811, end: 20210811
  4. ADVAIR HFA [Concomitant]
     Active Substance: FLUTICASONE PROPIONATE\SALMETEROL XINAFOATE
     Indication: Anxiety
     Dates: start: 20200128
  5. ADVAIR HFA [Concomitant]
     Active Substance: FLUTICASONE PROPIONATE\SALMETEROL XINAFOATE
     Indication: Injection site oedema
  6. ALBUTEROL [Concomitant]
     Active Substance: ALBUTEROL
     Indication: Asthma
     Dates: start: 20200128
  7. ALBUTEROL [Concomitant]
     Active Substance: ALBUTEROL
     Indication: Chronic obstructive pulmonary disease
  8. CLONIDINE [Concomitant]
     Active Substance: CLONIDINE
     Indication: Hypertension
     Route: 048
     Dates: start: 20150115
  9. DULAGLUTIDE [Concomitant]
     Active Substance: DULAGLUTIDE
     Indication: Diabetes mellitus
     Route: 058
     Dates: start: 20210721
  10. GABAPENTIN [Concomitant]
     Active Substance: GABAPENTIN
     Indication: Back pain
     Route: 048
     Dates: start: 20210721
  11. LISINOPRIL [Concomitant]
     Active Substance: LISINOPRIL
     Indication: Hypertension
     Route: 048
     Dates: start: 20210126
  12. METFORMIN [Concomitant]
     Active Substance: METFORMIN HYDROCHLORIDE
     Indication: Diabetes mellitus
     Route: 065
     Dates: start: 20210825
  13. REGLAN [Concomitant]
     Active Substance: METOCLOPRAMIDE HYDROCHLORIDE
     Indication: Jejunostomy
     Route: 065
     Dates: start: 20210810
  14. SCOPOLAMINE [Concomitant]
     Active Substance: SCOPOLAMINE
     Indication: Secretion discharge
     Route: 062
     Dates: start: 20210804
  15. SUMATRIPTAN [Concomitant]
     Active Substance: SUMATRIPTAN
     Indication: Headache
     Route: 048
     Dates: start: 20190207

REACTIONS (11)
  - Ileus [Not Recovered/Not Resolved]
  - Dysphagia [Not Recovered/Not Resolved]
  - Dysphonia [Not Recovered/Not Resolved]
  - Squamous cell carcinoma of head and neck [Not Recovered/Not Resolved]
  - Stoma site pain [Not Recovered/Not Resolved]
  - Laryngostomy [Unknown]
  - Nausea [Recovered/Resolved]
  - Vomiting [Unknown]
  - Abdominal pain [Recovered/Resolved]
  - Small intestinal obstruction [Unknown]
  - Constipation [Unknown]

NARRATIVE: CASE EVENT DATE: 20210719
